FAERS Safety Report 4642156-1 (Version None)
Quarter: 2005Q2

REPORT INFORMATION
  Report Type: 
  Country: None (occurrence: None)
  Receive Date: 20050421
  Receipt Date: 20050406
  Transmission Date: 20051028
  Serious: No
  Sender: FDA-Public Use
  Company Number: 2005S1002245

PATIENT
  Age: 77 Year
  Sex: Female
  Weight: 59.8748 kg

DRUGS (3)
  1. SPIRONOLACTONE [Suspect]
     Indication: HYPERTENSION
     Dosage: 25 MG TIW PO
     Route: 048
     Dates: start: 20030101
  2. TIAZAC [Suspect]
     Dosage: 180 MG QD PO
     Route: 048
  3. ACETYL SALICYLIC ACID USP BAT [Concomitant]

REACTIONS (3)
  - HEPATIC LESION [None]
  - LUNG DISORDER [None]
  - SCAR [None]
